FAERS Safety Report 4699801-4 (Version None)
Quarter: 2005Q2

REPORT INFORMATION
  Report Type: 
  Country: None (occurrence: None)
  Receive Date: 20050623
  Receipt Date: 20050610
  Transmission Date: 20051028
  Serious: Yes (Other)
  Sender: FDA-Public Use
  Company Number: 2003158731US

PATIENT
  Sex: Male

DRUGS (2)
  1. CELEBREX [Suspect]
     Indication: ILL-DEFINED DISORDER
     Dosage: (200 MG),ORAL
     Route: 048
     Dates: start: 19990101
  2. VIOXX [Suspect]
     Indication: ILL-DEFINED DISORDER
     Dosage: (25 MG),ORAL
     Route: 048
     Dates: start: 19991201

REACTIONS (5)
  - ARRHYTHMIA [None]
  - BLOOD PRESSURE INCREASED [None]
  - LARGE INTESTINAL ULCER HAEMORRHAGE [None]
  - OEDEMA [None]
  - OESOPHAGEAL ULCER HAEMORRHAGE [None]
